FAERS Safety Report 5490985-7 (Version None)
Quarter: 2007Q4

REPORT INFORMATION
  Report Type: 
  Country: None (occurrence: None)
  Receive Date: 20071019
  Receipt Date: 20071005
  Transmission Date: 20080405
  Serious: Yes (Other)
  Sender: FDA-Public Use
  Company Number: JP-PFIZER INC-2007078109

PATIENT
  Sex: Male
  Weight: 66.5 kg

DRUGS (3)
  1. GABAPEN [Suspect]
     Indication: EPILEPSY
     Dosage: DAILY DOSE:1200MG
     Route: 048
  2. PHENYTOIN [Concomitant]
     Route: 048
  3. CLOBAZAM [Concomitant]
     Route: 048

REACTIONS (2)
  - CONVULSION [None]
  - HYPOCALCAEMIA [None]
